FAERS Safety Report 12756951 (Version 5)
Quarter: 2018Q3

REPORT INFORMATION
  Report Type: Report from Study
  Country: FR (occurrence: FR)
  Receive Date: 20160917
  Receipt Date: 20180921
  Transmission Date: 20181010
  Serious: Yes (Hospitalization)
  Sender: FDA-Public Use
  Company Number: PHHY2016FR018479

PATIENT
  Age: 31 Year
  Sex: Female
  Weight: 64 kg

DRUGS (2)
  1. SEROPLEX [Concomitant]
     Active Substance: ESCITALOPRAM OXALATE
     Indication: ANXIETY
     Dosage: 15 MG, UNK
     Route: 065
     Dates: start: 201411
  2. GILENYA [Suspect]
     Active Substance: FINGOLIMOD HYDROCHLORIDE
     Indication: MULTIPLE SCLEROSIS
     Dosage: 0.5 MG, QD
     Route: 048
     Dates: start: 20150311

REACTIONS (11)
  - Suicidal ideation [Recovered/Resolved]
  - Depression [Recovered/Resolved]
  - Blood alcohol increased [Unknown]
  - Tooth abscess [Recovered/Resolved]
  - Headache [Recovered/Resolved]
  - Lymphopenia [Recovering/Resolving]
  - Hypertension [Recovered/Resolved]
  - Gamma-glutamyltransferase increased [Unknown]
  - Pain [Unknown]
  - Fatigue [Unknown]
  - Pain in extremity [Recovered/Resolved]

NARRATIVE: CASE EVENT DATE: 201503
